FAERS Safety Report 9388932 (Version 2)
Quarter: 2014Q1

REPORT INFORMATION
  Report Type: Spontaneous
  Country: US (occurrence: US)
  Receive Date: 20130708
  Receipt Date: 20140115
  Transmission Date: 20141002
  Serious: Yes (Hospitalization)
  Sender: FDA-Public Use
  Company Number: US-B.I. PHARMACEUTICALS,INC./RIDGEFIELD-2013-BI-19170BP

PATIENT
  Age: 67 Year
  Sex: Male
  Weight: 69.85 kg

DRUGS (9)
  1. PRADAXA [Suspect]
     Indication: ATRIAL FIBRILLATION
     Dates: start: 20110513, end: 20110706
  2. COREG [Concomitant]
     Dosage: 6.25 MG
     Route: 048
  3. LANOXIN [Concomitant]
     Dosage: 0.125 MG
     Route: 048
  4. SENOKOT S [Concomitant]
     Route: 048
  5. PRILOSEC [Concomitant]
     Indication: BARRETT^S OESOPHAGUS
     Dosage: 40 MG
     Route: 048
  6. THERAGRAN [Concomitant]
     Route: 048
  7. LASIX [Concomitant]
     Dosage: 40 MG
     Route: 048
  8. PRINIVIL [Concomitant]
     Dosage: 10 MG
     Route: 048
  9. KLOR-CON [Concomitant]
     Dosage: 20 MEQ
     Route: 048

REACTIONS (2)
  - Haemorrhagic anaemia [Unknown]
  - Gastrointestinal haemorrhage [Unknown]
